FAERS Safety Report 6305625-4 (Version None)
Quarter: 2009Q3

REPORT INFORMATION
  Report Type: 
  Country: None (occurrence: None)
  Receive Date: 20090806
  Receipt Date: 20080818
  Transmission Date: 20100115
  Serious: Yes (Hospitalization)
  Sender: FDA-Public Use
  Company Number: T07-JPN-00737-01

PATIENT
  Age: 69 Year
  Sex: Male
  Weight: 66.4 kg

DRUGS (7)
  1. MEMANTINE HCL [Suspect]
     Indication: DEMENTIA ALZHEIMER'S TYPE
     Dosage: 5-20 MG (1 IN 1 D), ORAL
     Route: 048
     Dates: start: 20060812, end: 20070128
  2. FERROUS CITRATE [Concomitant]
  3. REBAMIPIDE (REBAMIPIDE)(REBAMIPIDE) [Concomitant]
  4. AMLODIPINE BESILATE (AMLODIPINE BESILATE) (AMLODIPINE BESILATE) [Concomitant]
  5. CILNIDIPINE (CILNIDIPINE)(CILNIDIPINE) [Concomitant]
  6. TAMSULOSIN HYDROCHLORIDE [Concomitant]
  7. LEVOFLOXACIN LOXOPROFEN SODIUM [Concomitant]

REACTIONS (8)
  - AGGRESSION [None]
  - AGITATION [None]
  - LIBIDO INCREASED [None]
  - MENTAL IMPAIRMENT [None]
  - PARANOIA [None]
  - PERSECUTORY DELUSION [None]
  - PORIOMANIA [None]
  - PSYCHIATRIC SYMPTOM [None]
